FAERS Safety Report 14385879 (Version 6)
Quarter: 2018Q1

REPORT INFORMATION
  Report Type: Spontaneous
  Country: US (occurrence: US)
  Receive Date: 20180115
  Receipt Date: 20180207
  Transmission Date: 20180509
  Serious: No
  Sender: FDA-Public Use
  Company Number: US-BIOGEN-2018BI00508297

PATIENT
  Sex: Female

DRUGS (1)
  1. ZINBRYTA [Suspect]
     Active Substance: DACLIZUMAB
     Indication: MULTIPLE SCLEROSIS
     Route: 058
     Dates: start: 20170413

REACTIONS (11)
  - Memory impairment [Unknown]
  - Pain [Not Recovered/Not Resolved]
  - Drug dose omission [Unknown]
  - Headache [Not Recovered/Not Resolved]
  - Malaise [Unknown]
  - Musculoskeletal disorder [Not Recovered/Not Resolved]
  - Muscular weakness [Not Recovered/Not Resolved]
  - Inappropriate schedule of drug administration [Unknown]
  - Asthenia [Not Recovered/Not Resolved]
  - Gait disturbance [Unknown]
  - Cognitive disorder [Not Recovered/Not Resolved]
